APPROVED DRUG PRODUCT: NANDROLONE DECANOATE
Active Ingredient: NANDROLONE DECANOATE
Strength: 50MG/ML
Dosage Form/Route: INJECTABLE;INJECTION
Application: A088554 | Product #001
Applicant: WATSON LABORATORIES INC
Approved: Feb 10, 1986 | RLD: No | RS: No | Type: DISCN